FAERS Safety Report 11062581 (Version 1)
Quarter: 2015Q2

REPORT INFORMATION
  Report Type: Spontaneous
  Country: US (occurrence: US)
  Receive Date: 20150424
  Receipt Date: 20150424
  Transmission Date: 20150821
  Serious: No
  Sender: FDA-Public Use
  Company Number: US-009507513-1504USA017435

PATIENT
  Age: 47 Year
  Sex: Female
  Weight: 72.56 kg

DRUGS (1)
  1. COPPERTONE [Suspect]
     Active Substance: OCTINOXATE\OCTOCRYLENE
     Indication: SKIN COSMETIC PROCEDURE
     Dosage: 1 DOSE, TID
     Route: 061
     Dates: start: 20150404, end: 20150405

REACTIONS (1)
  - Drug ineffective [Unknown]

NARRATIVE: CASE EVENT DATE: 201504
